FAERS Safety Report 4690891-1 (Version None)
Quarter: 2005Q2

REPORT INFORMATION
  Report Type: 
  Country: None (occurrence: None)
  Receive Date: 20050615
  Receipt Date: 20050517
  Transmission Date: 20051028
  Serious: Yes (Other)
  Sender: FDA-Public Use
  Company Number: PHRM2005FR01561

PATIENT
  Age: 6 Year
  Sex: Female
  Weight: 17 kg

DRUGS (1)
  1. RITALIN [Suspect]
     Indication: ATTENTION DEFICIT/HYPERACTIVITY DISORDER
     Dosage: 5 MG, BID
     Route: 048
     Dates: start: 20050502, end: 20050512

REACTIONS (5)
  - APATHY [None]
  - FALL [None]
  - HYPOTONIA [None]
  - LOSS OF CONSCIOUSNESS [None]
  - SYNCOPE VASOVAGAL [None]
